FAERS Safety Report 5593420-3 (Version None)
Quarter: 2007Q4

REPORT INFORMATION
  Report Type: 
  Country: None (occurrence: None)
  Receive Date: 20071218
  Receipt Date: 20061227
  Transmission Date: 20080405
  Serious: Yes (Other)
  Sender: FDA-Public Use
  Company Number: 2007000567

PATIENT
  Age: 51 Year
  Sex: Female
  Weight: 66.2 kg

DRUGS (7)
  1. BEXTRA [Suspect]
     Indication: ARTHRITIS
     Dates: start: 20040625, end: 20050221
  2. ACETYLSALICYLIC ACID SRT [Concomitant]
  3. CELEBREX [Concomitant]
  4. CODEINE SUL TAB [Concomitant]
  5. MOBIC [Concomitant]
  6. MORPHINE [Concomitant]
  7. PERCOCET [Concomitant]

REACTIONS (1)
  - MYOCARDIAL INFARCTION [None]
